FAERS Safety Report 4861009-7 (Version None)
Quarter: 2005Q4

REPORT INFORMATION
  Report Type: 
  Country: None (occurrence: None)
  Receive Date: 20051220
  Receipt Date: 20050808
  Transmission Date: 20060501
  Serious: No
  Sender: FDA-Public Use
  Company Number: 20050701258

PATIENT
  Sex: Female
  Weight: 81.8 kg

DRUGS (5)
  1. TAGAMET [Suspect]
     Indication: DRUG USE FOR UNKNOWN INDICATION
     Route: 065
  2. MOTRIN [Suspect]
     Indication: ARTHRALGIA
     Route: 048
  3. MEVACOR [Concomitant]
     Indication: BLOOD CHOLESTEROL INCREASED
  4. LIPITOR [Concomitant]
  5. ANTI-HISTAMINE TAB [Concomitant]

REACTIONS (6)
  - ABDOMINAL PAIN UPPER [None]
  - DRUG INTERACTION [None]
  - FLUID RETENTION [None]
  - INSOMNIA [None]
  - PRURITUS [None]
  - WEIGHT INCREASED [None]
